FAERS Safety Report 16406532 (Version 1)
Quarter: 2019Q2

REPORT INFORMATION
  Report Type: Spontaneous
  Country: DE (occurrence: DE)
  Receive Date: 20190607
  Receipt Date: 20190607
  Transmission Date: 20190711
  Serious: Yes (Other)
  Sender: FDA-Public Use
  Company Number: PHHY2019DE043254

PATIENT
  Sex: Female

DRUGS (1)
  1. ULUNAR BREEZHALER [Suspect]
     Active Substance: GLYCOPYRROLATE\INDACATEROL MALEATE
     Indication: PRODUCT USED FOR UNKNOWN INDICATION
     Dosage: 1 DF, UNK
     Route: 055
     Dates: start: 201609

REACTIONS (4)
  - Foreign body aspiration [Unknown]
  - Incorrect route of product administration [Unknown]
  - Needle issue [Unknown]
  - Product physical issue [Unknown]
